FAERS Safety Report 16970050 (Version 3)
Quarter: 2020Q2

REPORT INFORMATION
  Report Type: Report from Study
  Country: CO (occurrence: CO)
  Receive Date: 20191029
  Receipt Date: 20200515
  Transmission Date: 20200713
  Serious: Yes (Life-Threatening, Other)
  Sender: FDA-Public Use
  Company Number: CO-BRISTOL-MYERS SQUIBB COMPANY-BMS-2019-103500

PATIENT
  Age: 66 Year
  Sex: Female

DRUGS (1)
  1. ABATACEPT [Suspect]
     Active Substance: ABATACEPT
     Indication: RHEUMATOID ARTHRITIS
     Dosage: 500 MILLIGRAM, Q4WK
     Route: 042
     Dates: start: 20181005

REACTIONS (8)
  - Vomiting [Recovering/Resolving]
  - Hypertension [Unknown]
  - Hepatic cirrhosis [Unknown]
  - Drug ineffective [Unknown]
  - Latent tuberculosis [Recovering/Resolving]
  - Hepatitis [Unknown]
  - Pain [Unknown]
  - Arthralgia [Recovering/Resolving]

NARRATIVE: CASE EVENT DATE: 20191018
